FAERS Safety Report 6746673-X (Version None)
Quarter: 2010Q2

REPORT INFORMATION
  Report Type: 
  Country: None (occurrence: None)
  Receive Date: 20100528
  Receipt Date: 20100519
  Transmission Date: 20101027
  Serious: Yes (Hospitalization)
  Sender: FDA-Public Use
  Company Number: JP-PFIZER INC-2010064574

PATIENT
  Age: 59 Year
  Sex: Male
  Weight: 73.3 kg

DRUGS (18)
  1. SUNITINIB MALATE [Suspect]
     Indication: RENAL CELL CARCINOMA
     Dosage: 50 MG, 1X/DAY
     Route: 048
     Dates: start: 20090209
  2. OXINORM [Concomitant]
     Route: 048
  3. PURSENNID [Concomitant]
     Dosage: UNK
     Route: 048
     Dates: start: 20090216, end: 20090224
  4. TAKEPRON [Concomitant]
     Route: 048
     Dates: end: 20090224
  5. DIOVANE [Concomitant]
     Route: 048
     Dates: end: 20090224
  6. NORVASC [Concomitant]
     Route: 048
     Dates: start: 20090217, end: 20090224
  7. ALLELOCK [Concomitant]
     Route: 048
     Dates: start: 20090215, end: 20090221
  8. OXYCONTIN [Concomitant]
     Route: 048
     Dates: start: 20090213, end: 20090224
  9. THEO-DUR [Concomitant]
     Route: 048
     Dates: end: 20090224
  10. TENORMIN [Concomitant]
     Route: 048
     Dates: end: 20090224
  11. GANATON [Concomitant]
     Route: 048
     Dates: end: 20090224
  12. CLEANAL [Concomitant]
     Route: 048
     Dates: end: 20090224
  13. MAGNESIUM OXIDE [Concomitant]
     Route: 048
     Dates: start: 20090218, end: 20090224
  14. ANTEBATE [Concomitant]
     Route: 062
     Dates: start: 20090215, end: 20090224
  15. SOSEGON [Concomitant]
     Route: 030
     Dates: start: 20090213, end: 20090220
  16. HEPARIN SODIUM [Concomitant]
     Route: 042
     Dates: start: 20090217, end: 20090227
  17. VEEN D [Concomitant]
     Route: 042
     Dates: start: 20090214, end: 20090218
  18. VEEN-F [Concomitant]
     Route: 042
     Dates: start: 20090213, end: 20090214

REACTIONS (1)
  - VASCULAR INSUFFICIENCY [None]
